FAERS Safety Report 12677498 (Version 1)
Quarter: 2016Q3

REPORT INFORMATION
  Report Type: Spontaneous
  Country: US (occurrence: US)
  Receive Date: 20160823
  Receipt Date: 20160823
  Transmission Date: 20161109
  Serious: Yes (Hospitalization, Other)
  Sender: FDA-Public Use
  Company Number: US-PFIZER INC-2016392561

PATIENT
  Sex: Male

DRUGS (2)
  1. METHADONE [Suspect]
     Active Substance: METHADONE HYDROCHLORIDE
  2. LYRICA [Suspect]
     Active Substance: PREGABALIN

REACTIONS (3)
  - Skin discolouration [Unknown]
  - Suicide attempt [Unknown]
  - Drug dependence [Unknown]
